FAERS Safety Report 8338678-2 (Version None)
Quarter: 2012Q2

REPORT INFORMATION
  Report Type: 
  Country: None (occurrence: None)
  Receive Date: 20120504
  Receipt Date: 20120424
  Transmission Date: 20120825
  Serious: Yes (Other)
  Sender: FDA-Public Use
  Company Number: RU-PFIZER INC-2012106155

PATIENT
  Age: 30 Year
  Sex: Female

DRUGS (3)
  1. GESTODENE AND ETHINYL ESTRADIOL [Suspect]
     Indication: LACTATION INHIBITION THERAPY
  2. GESTODENE AND ETHINYL ESTRADIOL [Suspect]
     Indication: OFF LABEL USE
     Dosage: UNK
     Route: 048
     Dates: start: 20120418
  3. DOSTINEX [Suspect]
     Dosage: UNK
     Dates: start: 20120423

REACTIONS (3)
  - DRUG INEFFECTIVE FOR UNAPPROVED INDICATION [None]
  - LOSS OF CONSCIOUSNESS [None]
  - MALAISE [None]
